FAERS Safety Report 7426736-6 (Version None)
Quarter: 2011Q2

REPORT INFORMATION
  Report Type: 
  Country: None (occurrence: None)
  Receive Date: 20110420
  Receipt Date: 20110405
  Transmission Date: 20111010
  Serious: Yes (Life-Threatening, Disabling, Other)
  Sender: FDA-Public Use
  Company Number: JP-CELGENEUS-TAJPN-11-0067

PATIENT
  Sex: Female
  Weight: 47 kg

DRUGS (8)
  1. ALLEGRA [Concomitant]
     Route: 048
     Dates: start: 20101119
  2. ABRAXANE [Suspect]
     Indication: BREAST CANCER METASTATIC
     Dates: start: 20101119, end: 20101119
  3. OPSO [Concomitant]
     Route: 048
     Dates: start: 20101119
  4. HERCEPTIN [Concomitant]
     Indication: BREAST CANCER METASTATIC
     Dates: start: 20101126, end: 20101126
  5. SOLANAX [Concomitant]
     Route: 048
     Dates: start: 20101119
  6. MERISLON [Concomitant]
     Route: 048
     Dates: start: 20101119
  7. OXYCONTIN [Concomitant]
     Route: 048
     Dates: start: 20101119
  8. MILMAG [Concomitant]
     Route: 048
     Dates: start: 20101119

REACTIONS (3)
  - NEUTROPHIL COUNT DECREASED [None]
  - WHITE BLOOD CELL COUNT DECREASED [None]
  - PERIPHERAL SENSORY NEUROPATHY [None]
